FAERS Safety Report 6409935-1 (Version None)
Quarter: 2009Q4

REPORT INFORMATION
  Report Type: 
  Country: None (occurrence: None)
  Receive Date: 20091022
  Receipt Date: 20091017
  Transmission Date: 20100525
  Serious: Yes (Other)
  Sender: FDA-Public Use
  Company Number: SE-BRISTOL-MYERS SQUIBB COMPANY-14816656

PATIENT
  Age: 35 Year
  Sex: Female

DRUGS (1)
  1. ABILIFY [Suspect]
     Indication: SCHIZOPHRENIA

REACTIONS (1)
  - DELUSION [None]
